FAERS Safety Report 21075896 (Version 1)
Quarter: 2022Q3

REPORT INFORMATION
  Report Type: Spontaneous
  Country: DE (occurrence: DE)
  Receive Date: 20220713
  Receipt Date: 20220713
  Transmission Date: 20221026
  Serious: Yes (Other)
  Sender: FDA-Public Use
  Company Number: DE-UCBSA-2022038327

PATIENT
  Age: 38 Year
  Sex: Male

DRUGS (9)
  1. CERTOLIZUMAB PEGOL [Suspect]
     Active Substance: CERTOLIZUMAB PEGOL
     Indication: Axial spondyloarthritis
     Dosage: UNKNOWN DOSE
     Dates: start: 2017, end: 2018
  2. METHOTREXATE [Concomitant]
     Active Substance: METHOTREXATE
     Indication: Axial spondyloarthritis
     Dosage: UNKNOWN DOSE
  3. TOFACITINIB CITRATE [Concomitant]
     Active Substance: TOFACITINIB CITRATE
     Indication: Axial spondyloarthritis
     Dosage: UNKNOWN DOSE
  4. INFLIXIMAB [Concomitant]
     Active Substance: INFLIXIMAB
     Indication: Axial spondyloarthritis
     Dosage: UNKNOWN DOSE
  5. GOLIMUMAB [Concomitant]
     Active Substance: GOLIMUMAB
     Indication: Axial spondyloarthritis
     Dosage: UNKNOWN DOSE
  6. ETANERCEPT [Concomitant]
     Active Substance: ETANERCEPT
     Indication: Axial spondyloarthritis
     Dosage: UNKNOWN DOSE
  7. SECUKINUMAB [Concomitant]
     Active Substance: SECUKINUMAB
     Indication: Axial spondyloarthritis
     Dosage: UNKNOWN DOSE
  8. SULFASALAZINE [Concomitant]
     Active Substance: SULFASALAZINE
     Indication: Axial spondyloarthritis
     Dosage: UNKNOWN DOSE
  9. PREDNISOLONE [Concomitant]
     Active Substance: PREDNISOLONE
     Indication: Axial spondyloarthritis
     Dosage: BETWEEN 50 AND 15 MG DAILY
     Route: 048

REACTIONS (3)
  - C-reactive protein increased [Unknown]
  - Weight decreased [Unknown]
  - Drug ineffective [Unknown]
